FAERS Safety Report 14764369 (Version 1)
Quarter: 2018Q2

REPORT INFORMATION
  Report Type: Spontaneous
  Country: AU (occurrence: AU)
  Receive Date: 20180416
  Receipt Date: 20180416
  Transmission Date: 20180711
  Serious: Yes (Death)
  Sender: FDA-Public Use
  Company Number: AU-ACTELION-A-CH2018-170445

PATIENT
  Age: 52 Year
  Sex: Male

DRUGS (2)
  1. SILDENAFIL. [Concomitant]
     Active Substance: SILDENAFIL
     Indication: SYSTEMIC SCLERODERMA
     Dosage: 25 MG, BID
     Route: 048
     Dates: start: 201607, end: 20180326
  2. OPSUMIT [Suspect]
     Active Substance: MACITENTAN
     Indication: SYSTEMIC SCLERODERMA
     Dosage: 10 MG, OD
     Route: 048
     Dates: start: 20160823, end: 20180326

REACTIONS (2)
  - Systemic scleroderma [Fatal]
  - Disease progression [Fatal]
